FAERS Safety Report 22276108 (Version 2)
Quarter: 2023Q2

REPORT INFORMATION
  Report Type: Spontaneous
  Country: BR (occurrence: BR)
  Receive Date: 20230502
  Receipt Date: 20230516
  Transmission Date: 20230721
  Serious: Yes (Other)
  Sender: FDA-Public Use
  Company Number: BR-009507513-2305BRA000609

PATIENT
  Sex: Female

DRUGS (1)
  1. JANUVIA [Suspect]
     Active Substance: SITAGLIPTIN PHOSPHATE
     Indication: Diabetes mellitus
     Dosage: STRENGTH 100 MG, 1 TABLET EVERY DAY
     Route: 048

REACTIONS (12)
  - Brain hypoxia [Unknown]
  - Hypoxia [Unknown]
  - Bipolar disorder [Unknown]
  - COVID-19 [Unknown]
  - Memory impairment [Unknown]
  - Muscular weakness [Unknown]
  - Therapeutic product effect variable [Unknown]
  - Blood pressure abnormal [Unknown]
  - Lung disorder [Unknown]
  - Confusional state [Unknown]
  - Ill-defined disorder [Unknown]
  - Blood glucose abnormal [Unknown]
